FAERS Safety Report 10723903 (Version 1)
Quarter: 2015Q1

REPORT INFORMATION
  Report Type: Spontaneous
  Country: ZA (occurrence: ZA)
  Receive Date: 20150120
  Receipt Date: 20150120
  Transmission Date: 20150721
  Serious: Yes (Other)
  Sender: FDA-Public Use
  Company Number: ZA-CIPLA LTD.-2015ZA00306

PATIENT

DRUGS (4)
  1. NEVIRAPINE. [Suspect]
     Active Substance: NEVIRAPINE
     Indication: HIV INFECTION
     Dosage: SINGLE DOSE
     Route: 064
  2. ZIDOVUDINE. [Suspect]
     Active Substance: ZIDOVUDINE
     Indication: HIV INFECTION
     Dosage: 28 WEEKS OF GESTATION
     Route: 064
  3. ZIDOVUDINE. [Suspect]
     Active Substance: ZIDOVUDINE
     Dosage: INTRAPARTUM AND NEONATAL FOR 7 DAYS
     Route: 063
  4. NEVIRAPINE. [Suspect]
     Active Substance: NEVIRAPINE
     Dosage: INTRAPARTUM AND NEONATAL SINGLE DOSE
     Route: 063

REACTIONS (4)
  - HIV infection [Unknown]
  - Drug ineffective [Unknown]
  - Foetal exposure during pregnancy [None]
  - Drug resistance [Unknown]
